FAERS Safety Report 8950402 (Version 3)
Quarter: 2013Q4

REPORT INFORMATION
  Report Type: Spontaneous
  Country: US (occurrence: US)
  Receive Date: 20121207
  Receipt Date: 20131009
  Transmission Date: 20140711
  Serious: Yes (Other)
  Sender: FDA-Public Use
  Company Number: US-PFIZER INC-2012308249

PATIENT
  Age: 39 Year
  Sex: Male
  Weight: 132 kg

DRUGS (3)
  1. NEURONTIN [Suspect]
     Indication: EPILEPSY
     Dosage: UNK
  2. NEURONTIN [Suspect]
     Indication: GRAND MAL CONVULSION
     Dosage: 800 MG, 2X/DAY
     Dates: start: 201211
  3. TEGRETOL [Concomitant]
     Dosage: UNK

REACTIONS (5)
  - Pneumonia [Recovered/Resolved]
  - Convulsion [Unknown]
  - Intervertebral disc protrusion [Unknown]
  - Influenza [Recovered/Resolved]
  - Dental caries [Not Recovered/Not Resolved]
